FAERS Safety Report 17647565 (Version 1)
Quarter: 2020Q2

REPORT INFORMATION
  Report Type: Spontaneous
  Country: US (occurrence: US)
  Receive Date: 20200409
  Receipt Date: 20200409
  Transmission Date: 20200713
  Serious: No
  Sender: FDA-Public Use
  Company Number: US-JNJFOC-20200319766

PATIENT
  Sex: Female
  Weight: 63.11 kg

DRUGS (1)
  1. TYLENOL 8 HR ARTHRITIS PAIN [Suspect]
     Active Substance: ACETAMINOPHEN
     Indication: ARTHRITIS
     Dosage: ONE IN THE MORNING AND ONE IN THE EVENING. TWICE DAILY NOT FREQUENTLY. STARTED 5 YEARS AGO
     Route: 048
     Dates: start: 2015

REACTIONS (4)
  - Pruritus [Not Recovered/Not Resolved]
  - Incorrect dose administered [Unknown]
  - Hypotension [Recovered/Resolved]
  - Inappropriate schedule of product administration [Unknown]

NARRATIVE: CASE EVENT DATE: 2015
